FAERS Safety Report 8573204-4 (Version None)
Quarter: 2012Q3

REPORT INFORMATION
  Report Type: 
  Country: None (occurrence: None)
  Receive Date: 20120806
  Receipt Date: 20120711
  Transmission Date: 20120928
  Serious: Yes (Other)
  Sender: FDA-Public Use
  Company Number: JP-BAYER-2011-078104

PATIENT
  Age: 80 Year
  Sex: Male

DRUGS (4)
  1. NEXAVAR [Suspect]
     Dosage: DAILY DOSE 400 MG
     Route: 048
     Dates: end: 20120215
  2. NEXAVAR [Suspect]
     Dosage: DAILY DOSE 600 MG
     Route: 048
     Dates: start: 20120216
  3. NEXAVAR [Suspect]
     Dosage: 400 MG, QOD
     Route: 048
     Dates: start: 20120401, end: 20120614
  4. NEXAVAR [Suspect]
     Indication: HEPATIC NEOPLASM MALIGNANT
     Dosage: 400 MG, BID
     Route: 048
     Dates: start: 20110801, end: 20110810

REACTIONS (6)
  - HAEMATURIA [None]
  - MALAISE [None]
  - BLADDER CANCER [None]
  - POLLAKIURIA [None]
  - DYSPHONIA [None]
  - DIARRHOEA [None]
